FAERS Safety Report 21132985 (Version 3)
Quarter: 2023Q1

REPORT INFORMATION
  Report Type: Spontaneous
  Country: PT (occurrence: PT)
  Receive Date: 20220726
  Receipt Date: 20230309
  Transmission Date: 20230418
  Serious: No
  Sender: FDA-Public Use
  Company Number: PT-NOVARTISPH-NVSC2022PT168027

PATIENT
  Age: 55 Year
  Sex: Male

DRUGS (1)
  1. ADALIMUMAB [Suspect]
     Active Substance: ADALIMUMAB
     Indication: Axial spondyloarthritis
     Dosage: UNK
     Route: 065
     Dates: start: 201902, end: 202007

REACTIONS (1)
  - Sarcoid-like reaction [Recovered/Resolved]

NARRATIVE: CASE EVENT DATE: 20200701
